FAERS Safety Report 9401521 (Version 1)
Quarter: 2013Q3

REPORT INFORMATION
  Report Type: Report from Study
  Country: CA (occurrence: CA)
  Receive Date: 20130716
  Receipt Date: 20130716
  Transmission Date: 20140515
  Serious: Yes (Other)
  Sender: FDA-Public Use
  Company Number: CA-ROCHE-1248710

PATIENT
  Sex: Female

DRUGS (2)
  1. RANIBIZUMAB [Suspect]
     Indication: PRODUCT USED FOR UNKNOWN INDICATION
     Route: 050
     Dates: end: 20130625
  2. RANIBIZUMAB [Suspect]
     Route: 050
     Dates: start: 20130625

REACTIONS (4)
  - Atrial fibrillation [Unknown]
  - Malaise [Unknown]
  - Vision blurred [Unknown]
  - Visual acuity reduced [Unknown]
